FAERS Safety Report 13494802 (Version 1)
Quarter: 2017Q2

REPORT INFORMATION
  Report Type: Spontaneous
  Country: US (occurrence: US)
  Receive Date: 20170428
  Receipt Date: 20170428
  Transmission Date: 20170830
  Serious: No
  Sender: FDA-Public Use
  Company Number: US-PFIZER INC-2017185412

PATIENT
  Age: 50 Year
  Sex: Female
  Weight: 77 kg

DRUGS (3)
  1. CYMBALTA [Concomitant]
     Active Substance: DULOXETINE HYDROCHLORIDE
     Indication: SUPPLEMENTATION THERAPY
  2. CYMBALTA [Concomitant]
     Active Substance: DULOXETINE HYDROCHLORIDE
     Indication: DEPRESSION
     Dosage: 60 MG, 1X/DAY
     Dates: end: 201702
  3. LYRICA [Suspect]
     Active Substance: PREGABALIN
     Indication: FIBROMYALGIA
     Dosage: 175 MG, 1X/DAY
     Route: 048
     Dates: end: 201702

REACTIONS (2)
  - Fatigue [Unknown]
  - Formication [Not Recovered/Not Resolved]

NARRATIVE: CASE EVENT DATE: 2017
